FAERS Safety Report 25063217 (Version 1)
Quarter: 2025Q1

REPORT INFORMATION
  Report Type: Spontaneous
  Country: US (occurrence: None)
  Receive Date: 20250310
  Receipt Date: 20250310
  Transmission Date: 20250409
  Serious: No
  Sender: FDA-CTU
  Company Number: None

PATIENT
  Age: 25 Year
  Sex: Female

DRUGS (2)
  1. GLUTAMINE [Suspect]
     Active Substance: GLUTAMINE
     Indication: Sickle cell disease
     Dosage: DOSE OR AMOUNT: MIX THE CONTENTS OF 3 PACKETS IN COLD OR ROOM TEMPERATURE BEVERAGE OR FOOD AND TAKE BY MOUTH 2 TIMES A DAY.
     Route: 048
     Dates: start: 202208
  2. ENDARI [Concomitant]
     Active Substance: GLUTAMINE

REACTIONS (1)
  - Sickle cell anaemia with crisis [None]

NARRATIVE: CASE EVENT DATE: 20250220
